FAERS Safety Report 25223413 (Version 1)
Quarter: 2025Q2

REPORT INFORMATION
  Report Type: Spontaneous
  Country: US (occurrence: US)
  Receive Date: 20250422
  Receipt Date: 20250422
  Transmission Date: 20250717
  Serious: No
  Sender: JOHNSON AND JOHNSON
  Company Number: US-JNJFOC-20250410541

PATIENT
  Age: 59 Year
  Sex: Male

DRUGS (2)
  1. EDURANT [Suspect]
     Active Substance: RILPIVIRINE HYDROCHLORIDE
     Indication: Product used for unknown indication
     Route: 048
     Dates: start: 20250303
  2. VOCABRIA [Concomitant]
     Active Substance: CABOTEGRAVIR SODIUM
     Indication: Product used for unknown indication

REACTIONS (1)
  - Product dose omission issue [Unknown]

NARRATIVE: CASE EVENT DATE: 20250407
